FAERS Safety Report 19370169 (Version 3)
Quarter: 2021Q3

REPORT INFORMATION
  Report Type: Spontaneous
  Country: US (occurrence: US)
  Receive Date: 20210603
  Receipt Date: 20210921
  Transmission Date: 20211014
  Serious: No
  Sender: FDA-Public Use
  Company Number: NVSC2021US125007

PATIENT
  Sex: Female

DRUGS (1)
  1. GLATOPA [Suspect]
     Active Substance: GLATIRAMER ACETATE
     Indication: PRODUCT USED FOR UNKNOWN INDICATION
     Dosage: UNK (3 TIMES A WEEK)
     Route: 065

REACTIONS (3)
  - Incorrect dose administered [Unknown]
  - Product dose omission issue [Unknown]
  - Accidental exposure to product [Unknown]
